FAERS Safety Report 22384331 (Version 1)
Quarter: 2023Q2

REPORT INFORMATION
  Report Type: Report from Study
  Country: US (occurrence: US)
  Receive Date: 20230530
  Receipt Date: 20230530
  Transmission Date: 20230722
  Serious: Yes (Hospitalization)
  Sender: FDA-Public Use
  Company Number: US-JNJFOC-20221022926

PATIENT
  Age: 47 Year
  Sex: Female

DRUGS (2)
  1. STELARA [Suspect]
     Active Substance: USTEKINUMAB
     Indication: Crohn^s disease
     Dosage: 5MG/ML
     Route: 040
     Dates: end: 20220826
  2. STELARA [Suspect]
     Active Substance: USTEKINUMAB
     Dosage: 5MG/ML
     Route: 040
     Dates: start: 20220828

REACTIONS (4)
  - Erythema [Unknown]
  - Pain [Unknown]
  - Adverse drug reaction [Unknown]
  - Rash [Unknown]

NARRATIVE: CASE EVENT DATE: 20220829
